FAERS Safety Report 5725296-5 (Version None)
Quarter: 2008Q2

REPORT INFORMATION
  Report Type: 
  Country: None (occurrence: None)
  Receive Date: 20080501
  Receipt Date: 20080424
  Transmission Date: 20081010
  Serious: Yes (Death, Life-Threatening, Hospitalization)
  Sender: FDA-Public Use
  Company Number: GB-ASTRAZENECA-2008SE02204

PATIENT
  Age: 77 Year
  Sex: Male
  Weight: 72 kg

DRUGS (3)
  1. AMIAS 8MG TABLETS [Suspect]
     Route: 048
     Dates: start: 20061027, end: 20070625
  2. ASPIRIN [Concomitant]
     Route: 065
     Dates: start: 19990101
  3. FENOFIBRATE [Concomitant]
     Route: 065
     Dates: start: 20001201

REACTIONS (9)
  - ABASIA [None]
  - ANOREXIA [None]
  - CHOLESTASIS [None]
  - HEPATITIS [None]
  - JAUNDICE CHOLESTATIC [None]
  - MENTAL IMPAIRMENT [None]
  - OEDEMA PERIPHERAL [None]
  - URINE COLOUR ABNORMAL [None]
  - WEIGHT DECREASED [None]
